APPROVED DRUG PRODUCT: MYCITRACIN
Active Ingredient: BACITRACIN; NEOMYCIN SULFATE; POLYMYXIN B SULFATE
Strength: 500 UNITS/GM;EQ 3.5MG BASE/GM;10,000 UNITS/GM
Dosage Form/Route: OINTMENT;OPHTHALMIC
Application: A061048 | Product #001
Applicant: PHARMACIA AND UPJOHN CO
Approved: Approved Prior to Jan 1, 1982 | RLD: No | RS: No | Type: DISCN